FAERS Safety Report 8572334-0 (Version None)
Quarter: 2012Q3

REPORT INFORMATION
  Report Type: 
  Country: None (occurrence: None)
  Receive Date: 20120806
  Receipt Date: 20120730
  Transmission Date: 20120928
  Serious: No
  Sender: FDA-Public Use
  Company Number: US-009507513-1208USA000008

PATIENT

DRUGS (2)
  1. CELEBREX [Concomitant]
     Indication: HEADACHE
  2. PEPCID [Suspect]
     Indication: DYSPEPSIA

REACTIONS (1)
  - HAEMATOCHEZIA [None]
